FAERS Safety Report 12529300 (Version 2)
Quarter: 2016Q3

REPORT INFORMATION
  Report Type: Spontaneous
  Country: US (occurrence: US)
  Receive Date: 20160705
  Receipt Date: 20160718
  Transmission Date: 20161109
  Serious: No
  Sender: FDA-Public Use
  Company Number: US-TAKEDA-2016TUS011364

PATIENT

DRUGS (1)
  1. ENTYVIO [Suspect]
     Active Substance: VEDOLIZUMAB
     Indication: CROHN^S DISEASE
     Route: 042

REACTIONS (5)
  - Flatulence [Unknown]
  - Fatigue [Unknown]
  - Abdominal pain [Unknown]
  - Bacterial infection [Unknown]
  - Abdominal discomfort [Unknown]
